FAERS Safety Report 18628824 (Version 1)
Quarter: 2020Q4

REPORT INFORMATION
  Report Type: Spontaneous
  Country: US (occurrence: US)
  Receive Date: 20201217
  Receipt Date: 20201217
  Transmission Date: 20210114
  Serious: No
  Sender: FDA-Public Use
  Company Number: US-PFIZER INC-2020496723

PATIENT
  Age: 80 Year
  Sex: Female
  Weight: 69.85 kg

DRUGS (1)
  1. LYRICA [Suspect]
     Active Substance: PREGABALIN
     Indication: FIBROMYALGIA
     Dosage: 50 MG, TAKE TWO DAILY
     Route: 048

REACTIONS (4)
  - Insomnia [Unknown]
  - Peripheral coldness [Unknown]
  - Aphonia [Unknown]
  - Drug withdrawal syndrome [Unknown]
